FAERS Safety Report 6465447-0 (Version None)
Quarter: 2009Q4

REPORT INFORMATION
  Report Type: 
  Country: None (occurrence: None)
  Receive Date: 20091124
  Receipt Date: 20091118
  Transmission Date: 20100525
  Serious: Yes (Other)
  Sender: FDA-Public Use
  Company Number: JHP200900369

PATIENT
  Age: 38 Year
  Sex: Female
  Weight: 49 kg

DRUGS (10)
  1. EPINEPHRINE [Suspect]
     Indication: CARDIAC FAILURE
     Dosage: 100 UG THROUGH ALTERNATE CATHETER
  2. EPINEPHRINE [Suspect]
     Indication: RIGHT VENTRICULAR FAILURE
     Dosage: 100 UG THROUGH ALTERNATE CATHETER
  3. SODIUM NITROPRUSSIDE [Concomitant]
  4. EPINEPHRINE (EPINEPHRINE BITARTRATE) [Concomitant]
  5. NITRIC OXIDE [Concomitant]
  6. AMINOPHYLLINE (ETHYLENEDIAMINE, THEOPHYLLINE MONOHYDRATE) [Concomitant]
  7. MIDAZOLAM HYDROCHLORIDE [Concomitant]
  8. FENTANYL CITRATE [Concomitant]
  9. ATRACURIUM (ATRACURIUM BESILATE) [Concomitant]
  10. ROCURONIUM BROMIDE [Concomitant]

REACTIONS (6)
  - HAEMODYNAMIC INSTABILITY [None]
  - HYPERTENSIVE CRISIS [None]
  - HYPOTENSION [None]
  - MEDICAL DEVICE COMPLICATION [None]
  - RIGHT VENTRICULAR FAILURE [None]
  - VENOUS OXYGEN SATURATION INCREASED [None]
